FAERS Safety Report 18195567 (Version 2)
Quarter: 2020Q3

REPORT INFORMATION
  Report Type: Spontaneous
  Country: AR (occurrence: AR)
  Receive Date: 20200825
  Receipt Date: 20200930
  Transmission Date: 20201103
  Serious: Yes (Other)
  Sender: FDA-Public Use
  Company Number: AR-PFIZER INC-2020327751

PATIENT
  Age: 75 Year
  Sex: Male

DRUGS (2)
  1. XELJANZ XR [Suspect]
     Active Substance: TOFACITINIB CITRATE
     Dosage: 11 MG, DAILY
  2. XELJANZ XR [Suspect]
     Active Substance: TOFACITINIB CITRATE
     Indication: RHEUMATOID ARTHRITIS
     Dosage: 11 MG, DAILY
     Dates: start: 20190605

REACTIONS (9)
  - Fall [Unknown]
  - Osteopenia [Unknown]
  - Cardiac disorder [Unknown]
  - Product dose omission in error [Unknown]
  - Decreased immune responsiveness [Unknown]
  - Upper limb fracture [Not Recovered/Not Resolved]
  - Rib fracture [Unknown]
  - Illness [Unknown]
  - Asthma [Unknown]

NARRATIVE: CASE EVENT DATE: 202003
